FAERS Safety Report 10774579 (Version 2)
Quarter: 2015Q1

REPORT INFORMATION
  Report Type: Report from Study
  Country: JP (occurrence: None)
  Receive Date: 20150122
  Receipt Date: 20150203
  Transmission Date: 20150721
  Serious: No
  Sender: FDA-Public Use
  Company Number: FK201500030

PATIENT
  Age: 40 Year
  Sex: Female
  Weight: 62 kg

DRUGS (13)
  1. VOLUVEN [Suspect]
     Active Substance: HYDROXYETHYL STARCH 130/0.4
     Indication: FLUID REPLACEMENT
     Dosage: 500 MG, 1 IN 1 TOTAL
     Route: 041
     Dates: start: 20141224, end: 20141224
  2. CARBOCAIN (MEPIVACAINE HYDROCHLORIDE) [Concomitant]
  3. CEFAZOLIN SODIUM. [Concomitant]
     Active Substance: CEFAZOLIN SODIUM
  4. DIPRIVAN [Concomitant]
     Active Substance: PROPOFOL
  5. ANAPEINE (ROPIVACAINE HYDROCHLORIDE) [Concomitant]
  6. BICANATE [Concomitant]
  7. VASOPRESSIN. [Concomitant]
     Active Substance: VASOPRESSIN
  8. REMIFENTANIL HYDROCHLORIDE (REMIFENTANIL HYDROCHLORIDE) [Concomitant]
  9. FENTANYL. [Concomitant]
     Active Substance: FENTANYL
  10. PHYSIO 140 [Concomitant]
  11. ULTIVA (REMIFENTANIL HYDROCHLORIDE) [Concomitant]
  12. ESLAX (ROCURONIUM BROMIDE) [Concomitant]
  13. EPHEDRINE [Concomitant]
     Active Substance: EPHEDRINE

REACTIONS (2)
  - Pruritus [None]
  - Erythema [None]

NARRATIVE: CASE EVENT DATE: 20141224
